FAERS Safety Report 12465781 (Version 3)
Quarter: 2016Q3

REPORT INFORMATION
  Report Type: Report from Study
  Country: US (occurrence: US)
  Receive Date: 20160614
  Receipt Date: 20160713
  Transmission Date: 20161109
  Serious: Yes (Other)
  Sender: FDA-Public Use
  Company Number: US-PFIZER INC-2016295537

PATIENT
  Age: 33 Year
  Sex: Male

DRUGS (1)
  1. BOSULIF [Suspect]
     Active Substance: BOSUTINIB MONOHYDRATE
     Dosage: 500 MG, DAILY
     Route: 048
     Dates: start: 2015

REACTIONS (3)
  - Decreased appetite [Unknown]
  - Weight decreased [Unknown]
  - Rash [Unknown]
